FAERS Safety Report 10465703 (Version 4)
Quarter: 2015Q1

REPORT INFORMATION
  Report Type: Spontaneous
  Country: CA (occurrence: CA)
  Receive Date: 20140919
  Receipt Date: 20150303
  Transmission Date: 20150720
  Serious: Yes (Other)
  Sender: FDA-Public Use
  Company Number: CA-GLAXOSMITHKLINE-A1089134A

PATIENT
  Age: 77 Year
  Sex: Male

DRUGS (1)
  1. ADVAIR HFA [Suspect]
     Active Substance: FLUTICASONE PROPIONATE\SALMETEROL XINAFOATE
     Dosage: 125/25 MCG
     Route: 055
     Dates: end: 201409

REACTIONS (26)
  - Decreased appetite [Unknown]
  - Middle insomnia [Not Recovered/Not Resolved]
  - Urine analysis abnormal [Not Recovered/Not Resolved]
  - Dry mouth [Not Recovered/Not Resolved]
  - Suffocation feeling [Not Recovered/Not Resolved]
  - Dry mouth [Unknown]
  - Sinusitis [Not Recovered/Not Resolved]
  - Lip swelling [Unknown]
  - Hyperhidrosis [Unknown]
  - Hypoaesthesia oral [Recovered/Resolved]
  - Testicular pain [Not Recovered/Not Resolved]
  - Lip swelling [Recovered/Resolved]
  - Rhinitis [Not Recovered/Not Resolved]
  - Apparent death [Unknown]
  - Urticaria [Not Recovered/Not Resolved]
  - Dry eye [Not Recovered/Not Resolved]
  - Allergic granulomatous angiitis [Not Recovered/Not Resolved]
  - Nausea [Unknown]
  - Headache [Not Recovered/Not Resolved]
  - Lip injury [Not Recovered/Not Resolved]
  - Eye disorder [Not Recovered/Not Resolved]
  - Product quality issue [Unknown]
  - Dysuria [Not Recovered/Not Resolved]
  - Dry throat [Not Recovered/Not Resolved]
  - Night sweats [Not Recovered/Not Resolved]
  - Arthralgia [Not Recovered/Not Resolved]

NARRATIVE: CASE EVENT DATE: 201409
